FAERS Safety Report 23692222 (Version 1)
Quarter: 2024Q1

REPORT INFORMATION
  Report Type: Spontaneous
  Country: US (occurrence: None)
  Receive Date: 20240329
  Receipt Date: 20240329
  Transmission Date: 20240410
  Serious: No
  Sender: FDA-Public Use
  Company Number: None

PATIENT
  Age: 66 Year
  Sex: Female

DRUGS (1)
  1. PIRFENIDONE [Suspect]
     Active Substance: PIRFENIDONE
     Indication: Idiopathic pulmonary fibrosis
     Dates: start: 20240101, end: 20240314

REACTIONS (8)
  - Blister [None]
  - Rash [None]
  - Asthenia [None]
  - Fatigue [None]
  - Skin exfoliation [None]
  - Sensitive skin [None]
  - Therapy cessation [None]
  - Viral infection [None]

NARRATIVE: CASE EVENT DATE: 20240329
